FAERS Safety Report 10082067 (Version 3)
Quarter: 2014Q2

REPORT INFORMATION
  Report Type: Report from Study
  Country: JP (occurrence: JP)
  Receive Date: 20140416
  Receipt Date: 20140509
  Transmission Date: 20141212
  Serious: Yes (Life-Threatening)
  Sender: FDA-Public Use
  Company Number: JP-TAKEDA-2014TJP004981

PATIENT
  Age: 71 Year
  Sex: Male
  Weight: 85 kg

DRUGS (12)
  1. ALOGLIPTIN [Suspect]
     Indication: TYPE 2 DIABETES MELLITUS
     Dosage: 12.5 MG, QD
     Route: 048
     Dates: start: 20130311, end: 20130426
  2. ALOGLIPTIN [Suspect]
     Dosage: 25 MG, QD
     Route: 048
     Dates: start: 20130427, end: 20140326
  3. MEDET [Concomitant]
     Indication: TYPE 2 DIABETES MELLITUS
     Dosage: 750 MG, 1 DAYS
     Route: 048
  4. MEDET [Concomitant]
     Dosage: 500 MG, UNK
     Route: 048
  5. BAYASPIRIN [Concomitant]
     Indication: CEREBROVASCULAR ACCIDENT PROPHYLAXIS
     Dosage: 100 MG, UNK
     Route: 048
  6. ANGIOTENSIN II ANTAGONIST+CALCIUM CHANNEL BLO [Concomitant]
     Indication: HYPERTENSION
     Dosage: 1 DF, UNK
     Route: 048
  7. CRESTOR [Concomitant]
     Dosage: UNK
     Route: 048
  8. EPADEL-S [Concomitant]
     Indication: DYSLIPIDAEMIA
     Dosage: 900 MG, UNK
     Route: 048
  9. NARCARICIN [Concomitant]
     Indication: HYPERURICAEMIA
     Dosage: 50 MG, UNK
     Route: 048
  10. COVERSYL                           /00790702/ [Concomitant]
     Indication: HYPERTENSION
     Dosage: 4 MG, UNK
     Route: 048
  11. GLIMEPIRIDE [Concomitant]
     Indication: TYPE 2 DIABETES MELLITUS
     Dosage: 0.5 MG, UNK
     Route: 048
  12. ATORVASTATIN                       /01326102/ [Concomitant]
     Indication: DYSLIPIDAEMIA
     Dosage: 5 MG, UNK
     Route: 048

REACTIONS (1)
  - Jugular vein thrombosis [Unknown]
